FAERS Safety Report 9375057 (Version 3)
Quarter: 2013Q3

REPORT INFORMATION
  Report Type: Report from Study
  Country: US (occurrence: US)
  Receive Date: 20130628
  Receipt Date: 20130809
  Transmission Date: 20140515
  Serious: Yes (Hospitalization)
  Sender: FDA-Public Use
  Company Number: US-BIOGENIDEC-2013BI054087

PATIENT
  Age: 59 Year
  Sex: Female
  Weight: 67 kg

DRUGS (22)
  1. TECFIDERA [Suspect]
     Indication: MULTIPLE SCLEROSIS
     Route: 048
     Dates: start: 20130530, end: 20130605
  2. TECFIDERA [Suspect]
     Indication: MULTIPLE SCLEROSIS
     Route: 048
     Dates: start: 20130606
  3. ADDERALL [Concomitant]
     Indication: FATIGUE
     Route: 048
     Dates: start: 1998, end: 201306
  4. PRIMIDONE [Concomitant]
     Indication: TREMOR
     Route: 048
     Dates: start: 201210
  5. METOPROLOL [Concomitant]
     Indication: ATRIAL FIBRILLATION
     Route: 048
     Dates: start: 201209
  6. METOPROLOL [Concomitant]
     Route: 048
     Dates: start: 201209
  7. METOPROLOL [Concomitant]
     Indication: ATRIAL FIBRILLATION
     Route: 048
  8. METOPROLOL [Concomitant]
     Route: 048
  9. DIGOXIN [Concomitant]
     Indication: ATRIAL FIBRILLATION
     Route: 048
     Dates: start: 201209, end: 20130705
  10. BACLOFEN [Concomitant]
     Indication: MUSCLE SPASMS
     Route: 048
     Dates: start: 201210
  11. LEVOTHYROXINE [Concomitant]
     Indication: HYPOTHYROIDISM
     Route: 048
     Dates: start: 1985
  12. GABAPENTIN [Concomitant]
     Indication: NECK PAIN
     Route: 048
     Dates: start: 2010
  13. VENLAFAXINE ER [Concomitant]
     Indication: DEPRESSION
     Route: 048
     Dates: start: 1981
  14. CYANOCOBALAMIN [Concomitant]
     Indication: VITAMIN B12 DEFICIENCY
     Route: 030
     Dates: start: 1998
  15. VALACYCLOVIR [Concomitant]
     Indication: HERPES ZOSTER
     Route: 048
     Dates: start: 20130319, end: 20130326
  16. VESICARE [Concomitant]
     Indication: HYPERTONIC BLADDER
     Route: 048
     Dates: start: 201206
  17. SPIRIVA [Concomitant]
     Indication: ASTHMA
     Route: 055
     Dates: start: 200803
  18. PROAIR HFA [Concomitant]
     Indication: ASTHMA
     Route: 055
     Dates: start: 200803
  19. PREMPRO ORAL [Concomitant]
     Indication: OESTROGEN REPLACEMENT THERAPY
     Route: 048
     Dates: start: 201302
  20. RIFAMPIN [Concomitant]
     Indication: LATENT TUBERCULOSIS
     Route: 048
     Dates: start: 20130319
  21. XARELTO [Concomitant]
     Indication: ANTICOAGULANT THERAPY
     Route: 048
     Dates: start: 20130622, end: 20130704
  22. GEODON [Concomitant]
     Indication: DEPRESSION
     Route: 048
     Dates: start: 201207, end: 20130703

REACTIONS (2)
  - Pain in jaw [Recovered/Resolved]
  - Troponin increased [Recovered/Resolved]
